FAERS Safety Report 7960637-X (Version None)
Quarter: 2011Q4

REPORT INFORMATION
  Report Type: 
  Country: None (occurrence: None)
  Receive Date: 20111206
  Receipt Date: 20111130
  Transmission Date: 20120403
  Serious: Yes (Other)
  Sender: FDA-Public Use
  Company Number: CA-ASTRAZENECA-2011SE72508

PATIENT
  Age: 64 Year
  Sex: Female

DRUGS (1)
  1. ARIMIDEX [Suspect]
     Indication: BREAST CANCER
     Route: 048
     Dates: start: 20100401

REACTIONS (8)
  - MUSCULAR WEAKNESS [None]
  - DECREASED APPETITE [None]
  - HAIR GROWTH ABNORMAL [None]
  - BREAST NEOPLASM [None]
  - PAIN IN EXTREMITY [None]
  - MYALGIA [None]
  - OSTEOPOROSIS [None]
  - ARTHRALGIA [None]
